FAERS Safety Report 25603557 (Version 1)
Quarter: 2025Q3

REPORT INFORMATION
  Report Type: Spontaneous
  Country: US (occurrence: US)
  Receive Date: 20250725
  Receipt Date: 20250725
  Transmission Date: 20251021
  Serious: Yes (Hospitalization)
  Sender: APOTEX
  Company Number: US-APOTEX-2025AP010387

PATIENT
  Age: 38 Year
  Sex: Female

DRUGS (1)
  1. LETROZOLE [Suspect]
     Active Substance: LETROZOLE
     Indication: Oestradiol increased
     Dosage: UNK, QD
     Route: 065

REACTIONS (1)
  - Adnexal torsion [Recovered/Resolved]
